FAERS Safety Report 25979079 (Version 2)
Quarter: 2025Q4

REPORT INFORMATION
  Report Type: Spontaneous
  Country: JP (occurrence: JP)
  Receive Date: 20251030
  Receipt Date: 20251113
  Transmission Date: 20260118
  Serious: Yes (Other)
  Sender: GILEAD
  Company Number: JP-GILEAD-2025-0734283

PATIENT
  Age: 6 Decade
  Sex: Female

DRUGS (5)
  1. TRODELVY [Suspect]
     Active Substance: SACITUZUMAB GOVITECAN-HZIY
     Indication: Triple negative breast cancer
     Dosage: UNK
     Route: 065
     Dates: start: 20250120, end: 202510
  2. PALONOSETRON HYDROCHLORIDE [Concomitant]
     Active Substance: PALONOSETRON HYDROCHLORIDE
     Indication: Antiemetic supportive care
     Dosage: UNK
  3. FOSNETUPITANT CHLORIDE HYDROCHLORIDE [Concomitant]
     Active Substance: FOSNETUPITANT CHLORIDE HYDROCHLORIDE
     Indication: Antiemetic supportive care
     Dosage: UNK
  4. DEXAMETHASONE [Concomitant]
     Active Substance: DEXAMETHASONE
     Indication: Antiemetic supportive care
     Dosage: UNK
  5. OLANZAPINE [Concomitant]
     Active Substance: OLANZAPINE
     Indication: Antiemetic supportive care
     Dosage: UNK

REACTIONS (1)
  - Triple negative breast cancer [Unknown]
